FAERS Safety Report 4855550-0 (Version None)
Quarter: 2005Q4

REPORT INFORMATION
  Report Type: 
  Country: None (occurrence: None)
  Receive Date: 20051214
  Receipt Date: 20051201
  Transmission Date: 20060501
  Serious: Yes (Hospitalization)
  Sender: FDA-Public Use
  Company Number: HQWYE778030NOV05

PATIENT
  Age: 58 Year
  Sex: Male

DRUGS (4)
  1. RAPAMUNE [Suspect]
     Indication: PROPHYLAXIS AGAINST TRANSPLANT REJECTION
     Dosage: 8 MG DOSE; ORAL
     Route: 048
     Dates: start: 20051111
  2. DOXAZOSIN MESYLATE [Concomitant]
  3. AMLODIPINE [Concomitant]
  4. CLORAZEPATE (CLORAZEPATE DIPOTASSIUM) [Concomitant]

REACTIONS (2)
  - HAEMODIALYSIS [None]
  - RENAL TUBULAR NECROSIS [None]
